FAERS Safety Report 20763347 (Version 10)
Quarter: 2024Q4

REPORT INFORMATION
  Report Type: Spontaneous
  Country: US (occurrence: US)
  Receive Date: 20220428
  Receipt Date: 20241111
  Transmission Date: 20250114
  Serious: No
  Sender: PFIZER
  Company Number: US-PFIZER INC-202200520879

PATIENT
  Age: 68 Year
  Sex: Female
  Weight: 76.7 kg

DRUGS (1)
  1. IBRANCE [Suspect]
     Active Substance: PALBOCICLIB
     Dosage: 100 MG, CYCLIC (ONE PILL DAILY FOR 21 DAYS WITH 14 DAYS OFF EVERY 35 DAYS)
     Route: 048

REACTIONS (3)
  - Poor quality sleep [Unknown]
  - Malaise [Unknown]
  - Fatigue [Unknown]
